FAERS Safety Report 20963969 (Version 1)
Quarter: 2022Q2

REPORT INFORMATION
  Report Type: Spontaneous
  Country: GB (occurrence: GB)
  Receive Date: 20220615
  Receipt Date: 20220615
  Transmission Date: 20220721
  Serious: Yes (Other)
  Sender: FDA-Public Use
  Company Number: GB-CELGENE-GBR-20211007045

PATIENT
  Age: 90 Year
  Sex: Female

DRUGS (10)
  1. DEXAMETHASONE [Suspect]
     Active Substance: DEXAMETHASONE
     Indication: Product used for unknown indication
     Dosage: FREQUENCY TEXT: NOT PROVIDED, UNIT DOSE :  20 MG,
     Route: 048
     Dates: start: 20181010
  2. DEXAMETHASONE [Suspect]
     Active Substance: DEXAMETHASONE
     Dosage: FREQUENCY TEXT: NOT PROVIDED, UNIT DOSE : 12 MG,
     Route: 048
     Dates: start: 20190517
  3. DEXAMETHASONE [Suspect]
     Active Substance: DEXAMETHASONE
     Dosage: FREQUENCY TEXT: NOT PROVIDED, UNIT DOSE : 12 MG,
     Route: 048
     Dates: start: 20190524
  4. DEXAMETHASONE [Suspect]
     Active Substance: DEXAMETHASONE
     Dosage: FREQUENCY TEXT: NOT PROVIDED,UNIT DOSE : 12 MG,
     Route: 048
     Dates: start: 20190510
  5. DEXAMETHASONE [Suspect]
     Active Substance: DEXAMETHASONE
     Dosage: FREQUENCY TEXT: NOT PROVIDED,UNIT DOSE : 12 MG,
     Route: 048
     Dates: start: 20190503
  6. DEXAMETHASONE [Suspect]
     Active Substance: DEXAMETHASONE
     Dosage: FREQUENCY TEXT: NOT PROVIDED, UNIT DOSE : 20 MG,
     Route: 048
     Dates: start: 20181024
  7. DEXAMETHASONE [Suspect]
     Active Substance: DEXAMETHASONE
     Dosage: FREQUENCY TEXT: NOT PROVIDED, UNIT DOSE : 20 MG,
     Route: 048
     Dates: start: 20181031
  8. DEXAMETHASONE [Suspect]
     Active Substance: DEXAMETHASONE
     Dosage: FREQUENCY TEXT: NOT PROVIDED, UNIT DOSE : 20 MG
     Route: 048
     Dates: start: 20181017
  9. POMALIDOMIDE [Suspect]
     Active Substance: POMALIDOMIDE
     Indication: Plasma cell myeloma
     Dosage: FREQUENCY TEXT: NOT PROVIDED, UNIT DOSE: 4 MG  THERAPY DURATION : 20  DAYS
     Route: 048
     Dates: start: 20190503, end: 20190523
  10. POMALIDOMIDE [Suspect]
     Active Substance: POMALIDOMIDE
     Dosage: FREQUENCY TEXT: NOT PROVIDED, UNIT DOSE: 4 MG  THERAPY DURATION : 20  DAYS
     Route: 048
     Dates: start: 20181010, end: 20181030

REACTIONS (3)
  - Thrombocytopenia [Unknown]
  - Neuropathy peripheral [Recovered/Resolved]
  - Anaemia [Recovered/Resolved]

NARRATIVE: CASE EVENT DATE: 20190503
